FAERS Safety Report 24116362 (Version 5)
Quarter: 2024Q4

REPORT INFORMATION
  Report Type: Spontaneous
  Country: CA (occurrence: CA)
  Receive Date: 20240722
  Receipt Date: 20241108
  Transmission Date: 20250115
  Serious: Yes (Hospitalization, Other)
  Sender: CELLTRION
  Company Number: CA-PFIZER INC-202400211812

PATIENT

DRUGS (6)
  1. INFLECTRA [Suspect]
     Active Substance: INFLIXIMAB-DYYB
     Indication: Rheumatoid arthritis
     Dosage: 400 MG, RE INDUCTION W 0, 2, 6, THEN EVERY 6 WEEKS
     Route: 042
     Dates: start: 20240531
  2. INFLECTRA [Suspect]
     Active Substance: INFLIXIMAB-DYYB
     Dosage: 400 MG, AFTER 5 WEEKS AND 4 DAYS (RE INDUCTION W 0, 2, 6, THEN EVERY 6 WEEKS)
     Route: 042
     Dates: start: 20240709
  3. INFLECTRA [Suspect]
     Active Substance: INFLIXIMAB-DYYB
     Dosage: 400 MG, AFTER 8 WEEKS AND 1 DAY (PRESCRIBED EVERY 6 WEEKS)
     Route: 042
     Dates: start: 20240904
  4. INFLECTRA [Suspect]
     Active Substance: INFLIXIMAB-DYYB
     Dosage: 400 MG, AFTER 8 WEEKS AND 1 DAY (PRESCRIBED EVERY 6 WEEKS)
     Route: 042
     Dates: start: 20240904
  5. INFLECTRA [Suspect]
     Active Substance: INFLIXIMAB-DYYB
     Dosage: 400 MG, AFTER 8 WEEKS (PRESCRIBED EVERY 6 WEEKS)
     Route: 042
     Dates: start: 20241030
  6. FLOMAX [Concomitant]
     Active Substance: TAMSULOSIN HYDROCHLORIDE
     Dosage: DAILY

REACTIONS (6)
  - Intestinal resection [Recovered/Resolved]
  - Fistula [Recovered/Resolved]
  - Blood pressure increased [Not Recovered/Not Resolved]
  - Dry skin [Not Recovered/Not Resolved]
  - Eczema [Not Recovered/Not Resolved]
  - Inappropriate schedule of product administration [Unknown]

NARRATIVE: CASE EVENT DATE: 20240101
